FAERS Safety Report 12440121 (Version 2)
Quarter: 2016Q3

REPORT INFORMATION
  Report Type: Report from Study
  Country: US (occurrence: US)
  Receive Date: 20160606
  Receipt Date: 20160921
  Transmission Date: 20161109
  Serious: Yes (Other)
  Sender: FDA-Public Use
  Company Number: US-AMGEN-USASL2015088197

PATIENT
  Age: 67 Year
  Sex: Female
  Weight: 121.54 kg

DRUGS (15)
  1. HYDRALAZINE [Concomitant]
     Active Substance: HYDRALAZINE HYDROCHLORIDE
     Dosage: 25 MG, TID (30 DAYS)
     Route: 048
  2. METOLAZONE. [Concomitant]
     Active Substance: METOLAZONE
     Dosage: 2.5 MG, QW
     Route: 048
  3. PROCRIT [Suspect]
     Active Substance: ERYTHROPOIETIN
     Indication: ANAEMIA
     Dosage: 10000 UNIT/ML, EVERY THREE WEEKS
     Route: 058
  4. METOPROLOL SUCCINATE. [Concomitant]
     Active Substance: METOPROLOL SUCCINATE
     Dosage: 100 MG, (TAKE 1 TABLET TWICE DAILY 30 DAYS)
     Route: 048
  5. PROCRIT [Suspect]
     Active Substance: ERYTHROPOIETIN
     Indication: CHRONIC KIDNEY DISEASE
  6. GLYBURIDE. [Concomitant]
     Active Substance: GLYBURIDE
     Dosage: 5 MG, BID
     Route: 048
  7. LASIX [Concomitant]
     Active Substance: FUROSEMIDE
     Dosage: UNK
  8. VERAPAMIL [Concomitant]
     Active Substance: VERAPAMIL HYDROCHLORIDE
     Dosage: 10 MG, BID (30 DAYS)
     Route: 048
  9. GABAPENTIN. [Concomitant]
     Active Substance: GABAPENTIN
     Dosage: 300 MG, BID
     Route: 048
  10. PROVENTIL HFA [Concomitant]
     Active Substance: ALBUTEROL SULFATE
     Dosage: UNK (INHALATION)
  11. LEVOTHYROXINE. [Concomitant]
     Active Substance: LEVOTHYROXINE
     Dosage: 50 MCG, QD
     Route: 048
  12. TERAZOSIN [Concomitant]
     Active Substance: TERAZOSIN\TERAZOSIN HYDROCHLORIDE
     Dosage: 5 MG, BID (2 CAPSULE BY MOUTH, 30 DAYS)
     Route: 048
  13. IRON [Concomitant]
     Active Substance: IRON
     Dosage: 325 MG, TID
     Route: 048
  14. GLIPIZIDE. [Concomitant]
     Active Substance: GLIPIZIDE
     Dosage: 10 MG, BID (30 DAYS)
     Route: 048
  15. ASPIR 81 [Concomitant]
     Dosage: 81 MG, QD
     Route: 048

REACTIONS (24)
  - Hyperparathyroidism secondary [Not Recovered/Not Resolved]
  - Wheelchair user [Unknown]
  - Albuminuria [Unknown]
  - Iron binding capacity total decreased [Unknown]
  - Pain in extremity [Unknown]
  - Type 2 diabetes mellitus [Unknown]
  - Blood creatinine increased [Unknown]
  - Essential hypertension [Unknown]
  - Oedema [Unknown]
  - Sleep apnoea syndrome [Unknown]
  - Blood uric acid increased [Unknown]
  - Proteinuria [Not Recovered/Not Resolved]
  - Decreased appetite [Unknown]
  - Blood triglycerides increased [Unknown]
  - Nephrogenic anaemia [Unknown]
  - Gout [Unknown]
  - Diabetic nephropathy [Unknown]
  - Haemoglobin decreased [Unknown]
  - Blood glucose increased [Unknown]
  - Vitamin D deficiency [Not Recovered/Not Resolved]
  - Mobility decreased [Unknown]
  - Haematocrit decreased [Unknown]
  - Osteoporosis [Unknown]
  - Musculoskeletal pain [Unknown]

NARRATIVE: CASE EVENT DATE: 20150820
